FAERS Safety Report 14377413 (Version 1)
Quarter: 2018Q1

REPORT INFORMATION
  Report Type: Spontaneous
  Country: US (occurrence: US)
  Receive Date: 20180111
  Receipt Date: 20180111
  Transmission Date: 20180509
  Serious: Yes (Hospitalization, Other)
  Sender: FDA-Public Use
  Company Number: US-SA-2018SA006872

PATIENT
  Age: 71 Year
  Sex: Male

DRUGS (2)
  1. LANTUS SOLOSTAR [Suspect]
     Active Substance: INSULIN GLARGINE
     Indication: TYPE 2 DIABETES MELLITUS
     Dosage: DOSE:70 UNIT(S)
     Route: 051
  2. SOLOSTAR [Suspect]
     Active Substance: DEVICE
     Indication: TYPE 2 DIABETES MELLITUS

REACTIONS (8)
  - Fall [Unknown]
  - Pelvic fracture [Unknown]
  - Product use issue [Unknown]
  - Wrist fracture [Unknown]
  - Cataract [Unknown]
  - Device issue [Unknown]
  - Foot fracture [Unknown]
  - Injection site pain [Unknown]

NARRATIVE: CASE EVENT DATE: 201712
